FAERS Safety Report 8528060 (Version 4)
Quarter: 2013Q3

REPORT INFORMATION
  Report Type: Report from Study
  Country: US (occurrence: US)
  Receive Date: 20120424
  Receipt Date: 20130902
  Transmission Date: 20140515
  Serious: Yes (Other)
  Sender: FDA-Public Use
  Company Number: US-ROCHE-1059972

PATIENT
  Age: 64 Year
  Sex: Female
  Weight: 83.99 kg

DRUGS (8)
  1. HERCEPTIN [Suspect]
     Indication: HER-2 POSITIVE BREAST CANCER
     Route: 042
     Dates: start: 20120308, end: 20120705
  2. HERCEPTIN [Suspect]
     Route: 042
     Dates: start: 20120705
  3. MINOCYCLINE [Concomitant]
     Indication: HIDRADENITIS
     Route: 048
  4. DOCETAXOL [Concomitant]
     Indication: BREAST CANCER
     Route: 042
  5. CYTOXAN [Concomitant]
     Indication: BREAST CANCER
     Route: 042
  6. CARBOPLATIN [Concomitant]
     Indication: BREAST CANCER
     Route: 042
     Dates: start: 20120308
  7. TAXOTERE [Concomitant]
     Indication: BREAST CANCER
     Route: 042
     Dates: start: 20120308, end: 20120705
  8. PREDNISONE [Concomitant]
     Route: 042
     Dates: start: 20120315

REACTIONS (9)
  - Tongue disorder [Recovering/Resolving]
  - Headache [Not Recovered/Not Resolved]
  - Dizziness [Not Recovered/Not Resolved]
  - Nausea [Not Recovered/Not Resolved]
  - Lacrimation increased [Not Recovered/Not Resolved]
  - Muscle twitching [Not Recovered/Not Resolved]
  - Dyspnoea [Not Recovered/Not Resolved]
  - Cough [Not Recovered/Not Resolved]
  - Weight increased [Not Recovered/Not Resolved]
